FAERS Safety Report 6583255-7 (Version None)
Quarter: 2010Q1

REPORT INFORMATION
  Report Type: 
  Country: None (occurrence: None)
  Receive Date: 20100216
  Receipt Date: 20100210
  Transmission Date: 20100710
  Serious: Yes (Hospitalization)
  Sender: FDA-Public Use
  Company Number: A0772095A

PATIENT
  Age: 47 Year
  Sex: Male

DRUGS (7)
  1. LAMICTAL [Suspect]
     Indication: BIPOLAR DISORDER
     Dosage: 300MGD PER DAY
     Route: 048
  2. MIDRIN [Suspect]
     Indication: HEADACHE
     Dosage: 1CAP TWICE PER DAY
     Route: 048
  3. SYNTHROID [Concomitant]
  4. ABILIFY [Concomitant]
  5. CADUET [Concomitant]
  6. AMBIEN [Concomitant]
  7. TRICOR [Concomitant]

REACTIONS (21)
  - CHEST PAIN [None]
  - DISORIENTATION [None]
  - DIZZINESS [None]
  - DRUG INTERACTION [None]
  - DRY MOUTH [None]
  - HALLUCINATION, AUDITORY [None]
  - HEADACHE [None]
  - INSOMNIA [None]
  - MALAISE [None]
  - NECK PAIN [None]
  - NERVE COMPRESSION [None]
  - NEURALGIA [None]
  - PAIN IN EXTREMITY [None]
  - RASH [None]
  - STRESS [None]
  - SUICIDAL IDEATION [None]
  - TACHYPHRENIA [None]
  - TENSION [None]
  - TENSION HEADACHE [None]
  - THINKING ABNORMAL [None]
  - VISION BLURRED [None]
